FAERS Safety Report 14176669 (Version 1)
Quarter: 2017Q4

REPORT INFORMATION
  Report Type: Spontaneous
  Country: US (occurrence: US)
  Receive Date: 20171109
  Receipt Date: 20171109
  Transmission Date: 20180321
  Serious: Yes (Disabling, Other)
  Sender: FDA-Public Use
  Company Number: None

PATIENT
  Age: 32 Year
  Sex: Male
  Weight: 98.1 kg

DRUGS (4)
  1. VENLAFAXINE HCL [Suspect]
     Active Substance: VENLAFAXINE HYDROCHLORIDE
     Indication: ANXIETY
     Dosage: ?          QUANTITY:30 CAPSULE(S);?
     Route: 048
     Dates: start: 20171101, end: 20171102
  2. DIAZAPAM [Concomitant]
     Active Substance: DIAZEPAM
  3. EMERGENZZZ [Concomitant]
  4. DOCQLACE [Concomitant]
     Active Substance: DOCUSATE SODIUM

REACTIONS (9)
  - Somnolence [None]
  - Disturbance in attention [None]
  - Feeling abnormal [None]
  - Blunted affect [None]
  - Body temperature decreased [None]
  - Panic attack [None]
  - Fear [None]
  - Depression [None]
  - Insomnia [None]

NARRATIVE: CASE EVENT DATE: 20171102
